FAERS Safety Report 11916734 (Version 1)
Quarter: 2016Q1

REPORT INFORMATION
  Report Type: Report from Study
  Country: PL (occurrence: PL)
  Receive Date: 20160114
  Receipt Date: 20160114
  Transmission Date: 20160526
  Serious: Yes (Hospitalization)
  Sender: FDA-Public Use
  Company Number: PL-BIOGEN-2016BI00168875

PATIENT
  Age: 46 Year
  Sex: Female
  Weight: 52 kg

DRUGS (1)
  1. BG00012 [Suspect]
     Active Substance: DIMETHYL FUMARATE
     Indication: MULTIPLE SCLEROSIS
     Dates: start: 20100409

REACTIONS (1)
  - Hand fracture [Unknown]

NARRATIVE: CASE EVENT DATE: 20160102
